FAERS Safety Report 16540557 (Version 1)
Quarter: 2019Q3

REPORT INFORMATION
  Report Type: Spontaneous
  Country: US (occurrence: US)
  Receive Date: 20190708
  Receipt Date: 20190708
  Transmission Date: 20191004
  Serious: No
  Sender: FDA-Public Use
  Company Number: US-PFIZER INC-2019284866

PATIENT
  Age: 34 Year
  Sex: Female

DRUGS (6)
  1. IBUPROFEN. [Suspect]
     Active Substance: IBUPROFEN
     Dosage: UNK
  2. DILAUDID [Suspect]
     Active Substance: HYDROMORPHONE HYDROCHLORIDE
     Indication: FRACTURE PAIN
     Dosage: UNK, SINGLE [ONE TIME DOSE INTRAMUSCULAR]
     Route: 030
     Dates: start: 20190610, end: 20190610
  3. DILAUDID [Suspect]
     Active Substance: HYDROMORPHONE HYDROCHLORIDE
     Dosage: UNK, AS NEEDED
     Route: 048
     Dates: start: 201906
  4. VIVITROL [Concomitant]
     Active Substance: NALTREXONE
     Indication: DRUG ABUSE
     Dosage: 380 MG, MONTHLY
     Route: 030
     Dates: start: 20181209
  5. VIVITROL [Concomitant]
     Active Substance: NALTREXONE
     Dosage: UNK
     Dates: start: 20190523
  6. VIVITROL [Concomitant]
     Active Substance: NALTREXONE
     Dosage: 380 MG, MONTHLY
     Route: 030
     Dates: start: 20190423

REACTIONS (2)
  - Depressed mood [Unknown]
  - Somnolence [Unknown]
